FAERS Safety Report 8992214 (Version 3)
Quarter: 2013Q1

REPORT INFORMATION
  Report Type: Spontaneous
  Country: JP (occurrence: JP)
  Receive Date: 20121231
  Receipt Date: 20130321
  Transmission Date: 20140127
  Serious: Yes (Hospitalization)
  Sender: FDA-Public Use
  Company Number: JP-ABBOTT-12P-087-1028967-00

PATIENT
  Age: 25 Year
  Sex: Female

DRUGS (1)
  1. HUMIRA [Suspect]
     Indication: POLYARTHRITIS

REACTIONS (1)
  - Behcet^s syndrome [Recovered/Resolved]
